FAERS Safety Report 16915934 (Version 3)
Quarter: 2019Q4

REPORT INFORMATION
  Report Type: Report from Study
  Country: JP (occurrence: JP)
  Receive Date: 20191014
  Receipt Date: 20191112
  Transmission Date: 20200122
  Serious: Yes (Death, Disabling)
  Sender: FDA-Public Use
  Company Number: JP-EISAI MEDICAL RESEARCH-EC-2019-061708

PATIENT
  Age: 79 Year
  Sex: Male
  Weight: 59 kg

DRUGS (1)
  1. LENVIMA [Suspect]
     Active Substance: LENVATINIB
     Indication: HEPATOCELLULAR CARCINOMA
     Route: 048
     Dates: start: 20180918, end: 20190603

REACTIONS (3)
  - Malignant neoplasm progression [Fatal]
  - Hepatic failure [Fatal]
  - Cerebral infarction [Recovered/Resolved with Sequelae]

NARRATIVE: CASE EVENT DATE: 20190603
